FAERS Safety Report 15471143 (Version 1)
Quarter: 2018Q4

REPORT INFORMATION
  Report Type: Spontaneous
  Country: US (occurrence: US)
  Receive Date: 20181006
  Receipt Date: 20181006
  Transmission Date: 20190205
  Serious: No
  Sender: FDA-Public Use
  Company Number: US-009507513-1810USA000538

PATIENT
  Weight: 60 kg

DRUGS (2)
  1. KEYTRUDA [Suspect]
     Active Substance: PEMBROLIZUMAB
     Indication: HEAD AND NECK CANCER
     Dosage: 200 MG EVERY 3 WEEKS
     Route: 042
     Dates: end: 20180907
  2. KEYTRUDA [Suspect]
     Active Substance: PEMBROLIZUMAB
     Indication: HYPOPHARYNGEAL CANCER
     Dosage: 120 MG (WEIGHT-BASED DOSE AT 2 MG PER KG)
     Route: 042
     Dates: start: 20180907, end: 201809

REACTIONS (3)
  - Mucosal inflammation [Unknown]
  - Lip swelling [Unknown]
  - Swelling [Unknown]

NARRATIVE: CASE EVENT DATE: 201809
